FAERS Safety Report 18108090 (Version 2)
Quarter: 2020Q3

REPORT INFORMATION
  Report Type: Report from Study
  Country: NL (occurrence: NL)
  Receive Date: 20200804
  Receipt Date: 20200805
  Transmission Date: 20201103
  Serious: Yes (Life-Threatening, Hospitalization)
  Sender: FDA-Public Use
  Company Number: NL-ROCHE-2651678

PATIENT
  Age: 39 Year
  Sex: Female

DRUGS (5)
  1. PACLITAXEL. [Suspect]
     Active Substance: PACLITAXEL
     Indication: HER2 POSITIVE BREAST CANCER
     Dosage: MOST RECENT DOSE OF PACLITAXEL ON 27/MAY/2020?D1, D8
     Route: 042
     Dates: start: 20191125
  2. TRASTUZUMAB. [Suspect]
     Active Substance: TRASTUZUMAB
     Indication: HER2 POSITIVE BREAST CANCER
     Dosage: MOST RECENT DOSE OF TRASTUZUMAB ON 08/JUL/2020
     Route: 042
     Dates: start: 20191125
  3. PERTUZUMAB. [Suspect]
     Active Substance: PERTUZUMAB
     Indication: HER2 POSITIVE BREAST CANCER
     Dosage: MOST RECENT DOSE OF PERTUZUMAB ON 08/JUL/2020
     Route: 042
     Dates: start: 20191125
  4. CARBOPLATIN. [Suspect]
     Active Substance: CARBOPLATIN
     Indication: HER2 POSITIVE BREAST CANCER
     Dosage: MOST RECENT DOSE OF CARBOPLATIN ON 20/MAY/2020?D1, D8
     Route: 042
     Dates: start: 20191125
  5. OXAZEPAM. [Concomitant]
     Active Substance: OXAZEPAM
     Dates: start: 20200311

REACTIONS (1)
  - Hypokalaemia [Unknown]

NARRATIVE: CASE EVENT DATE: 20200729
